FAERS Safety Report 4779462-6 (Version None)
Quarter: 2005Q3

REPORT INFORMATION
  Report Type: 
  Country: None (occurrence: None)
  Receive Date: 20050923
  Receipt Date: 20050808
  Transmission Date: 20060218
  Serious: No
  Sender: FDA-Public Use
  Company Number: USA020819619

PATIENT
  Age: 78 Year
  Sex: Female
  Weight: 56 kg

DRUGS (5)
  1. EVISTA [Suspect]
     Indication: OSTEOPOROSIS
     Dosage: 60 MG/1 DAY
     Dates: start: 19980201
  2. FORTEO [Suspect]
     Indication: OSTEOPOROSIS
     Dosage: UNK
     Dates: start: 20040101
  3. FOSAMAX [Concomitant]
  4. SYNTHROID [Concomitant]
  5. LOPRESSOR [Concomitant]

REACTIONS (2)
  - BONE DENSITY DECREASED [None]
  - KYPHOSIS [None]
